FAERS Safety Report 5937384-9 (Version None)
Quarter: 2008Q4

REPORT INFORMATION
  Report Type: 
  Country: None (occurrence: None)
  Receive Date: 20081031
  Receipt Date: 20081023
  Transmission Date: 20090506
  Serious: Yes (Hospitalization, Other)
  Sender: FDA-Public Use
  Company Number: JP-BAYER-200812054BYL

PATIENT
  Age: 72 Year
  Sex: Female
  Weight: 65 kg

DRUGS (9)
  1. NEXAVAR [Suspect]
     Indication: RENAL CELL CARCINOMA STAGE IV
     Dosage: AS USED: 400 MG  UNIT DOSE: 200 MG
     Route: 048
     Dates: start: 20080617, end: 20080708
  2. NEXAVAR [Suspect]
     Dosage: AS USED: 200 MG  UNIT DOSE: 200 MG
     Route: 048
     Dates: start: 20080818
  3. NEXAVAR [Suspect]
     Dosage: TOTAL DAILY DOSE: 200 MG  UNIT DOSE: 200 MG
     Route: 048
     Dates: start: 20080908, end: 20080922
  4. BLOPRESS [Concomitant]
     Indication: HYPERTENSION
     Route: 048
     Dates: start: 20080617
  5. FAMOTIDINE [Concomitant]
     Route: 048
     Dates: start: 20080617
  6. ACTOS [Concomitant]
     Indication: DIABETES MELLITUS
     Route: 048
     Dates: start: 20080617
  7. HYPEN [Concomitant]
     Route: 048
     Dates: start: 20080628
  8. PAXIL [Concomitant]
     Route: 048
     Dates: start: 20080628
  9. TOFRANIL [Concomitant]
     Route: 048
     Dates: start: 20080628, end: 20080706

REACTIONS (3)
  - ALOPECIA [None]
  - ANOREXIA [None]
  - SYNCOPE [None]
